FAERS Safety Report 9280360 (Version 2)
Quarter: 2013Q2

REPORT INFORMATION
  Report Type: Spontaneous
  Country: US (occurrence: US)
  Receive Date: 20130509
  Receipt Date: 20130524
  Transmission Date: 20140414
  Serious: No
  Sender: FDA-Public Use
  Company Number: US-009507513-1305USA000750

PATIENT
  Sex: Male

DRUGS (4)
  1. VICTRELIS [Suspect]
     Indication: CHRONIC HEPATITIS C
     Dosage: 800 MG, Q8H
     Route: 048
     Dates: start: 2012
  2. PEGASYS [Suspect]
     Indication: CHRONIC HEPATITIS C
     Dosage: UNK
  3. RIBAPAK [Suspect]
     Indication: CHRONIC HEPATITIS C
     Dosage: UNK
  4. VASOTEC [Concomitant]
     Dosage: UNK

REACTIONS (3)
  - Rash [Unknown]
  - Rash [Unknown]
  - Rash [Unknown]
